FAERS Safety Report 21255006 (Version 2)
Quarter: 2022Q3

REPORT INFORMATION
  Report Type: Spontaneous
  Country: DE (occurrence: DE)
  Receive Date: 20220825
  Receipt Date: 20220902
  Transmission Date: 20221027
  Serious: Yes (Hospitalization)
  Sender: FDA-Public Use
  Company Number: DE-MYLANLABS-2022M1088627

PATIENT
  Sex: Female

DRUGS (3)
  1. AMIODARONE [Interacting]
     Active Substance: AMIODARONE
     Indication: Supraventricular tachycardia
     Dosage: UNK, INFUSION
     Route: 065
  2. SIROLIMUS [Interacting]
     Active Substance: SIROLIMUS
     Indication: Rhabdomyoma
     Dosage: 0.4 MILLIGRAM/SQ. METER, BID
     Route: 065
  3. SIROLIMUS [Interacting]
     Active Substance: SIROLIMUS
     Indication: Tuberous sclerosis complex

REACTIONS (3)
  - Drug level increased [Unknown]
  - Labelled drug-drug interaction medication error [Unknown]
  - Off label use [Unknown]
